FAERS Safety Report 9134555 (Version 1)
Quarter: 2013Q1

REPORT INFORMATION
  Report Type: Spontaneous
  Country: BR (occurrence: BR)
  Receive Date: 20130304
  Receipt Date: 20130304
  Transmission Date: 20140127
  Serious: Yes (Hospitalization, Other)
  Sender: FDA-Public Use
  Company Number: PHHY2013BR018399

PATIENT
  Age: 87 None
  Sex: Female

DRUGS (10)
  1. DIOVAN AMLO FIX [Suspect]
     Indication: HYPERTENSION
     Dosage: 1 DF (320MG VALS/5MG AMLO), DAILY
     Route: 048
  2. DIOVAN [Suspect]
     Indication: HYPERTENSION
     Dosage: 1 DF (160MG), DAILY
     Route: 048
  3. HYDROCHLOROTHIAZIDE [Concomitant]
     Indication: DIURETIC THERAPY
     Dosage: 25 MG, QD IN THE MORNING
     Route: 048
  4. CAPILAREMA [Concomitant]
     Indication: CARDIOVASCULAR DISORDER
     Dosage: 1 DF, Q12H
     Route: 048
  5. OMEPRAZOLE [Concomitant]
     Indication: GASTROINTESTINAL DISORDER
     Dosage: 20 MG, UNK
     Route: 048
  6. CARVEDILOL [Concomitant]
     Indication: CARDIAC DISORDER
     Dosage: 2 DF, DAILY
     Route: 048
  7. MONOCORDIL [Concomitant]
     Indication: CARDIAC DISORDER
     Dosage: 2 DF, DAILY
     Route: 048
  8. APRESOLINA [Concomitant]
     Indication: CARDIAC DISORDER
     Dosage: 25 MG, DAILY, IN THE MORNING
     Route: 048
  9. SIMVASTATIN [Concomitant]
     Indication: BLOOD CHOLESTEROL ABNORMAL
     Dosage: 20 MG, UNK, AT THE NIGHT
     Route: 048
  10. ACETYLSALICYLIC ACID [Concomitant]
     Indication: COAGULOPATHY
     Dosage: 100 MG, UNK, AT THE LUNCH
     Route: 048

REACTIONS (9)
  - Cardiac arrest [Recovering/Resolving]
  - Pneumonia [Recovered/Resolved]
  - Pulmonary oedema [Recovered/Resolved]
  - Thyroid disorder [Not Recovered/Not Resolved]
  - Urinary tract infection [Not Recovered/Not Resolved]
  - Lower limb fracture [Recovered/Resolved]
  - Erysipelas [Recovered/Resolved]
  - Fall [Recovered/Resolved]
  - Osteoporosis [Not Recovered/Not Resolved]
